FAERS Safety Report 8257721-2 (Version None)
Quarter: 2012Q2

REPORT INFORMATION
  Report Type: 
  Country: None (occurrence: None)
  Receive Date: 20120404
  Receipt Date: 20120321
  Transmission Date: 20120825
  Serious: Yes (Hospitalization, Other)
  Sender: FDA-Public Use
  Company Number: JP-AMGEN-JPNSP2012019748

PATIENT
  Sex: Female

DRUGS (1)
  1. ENBREL [Suspect]
     Indication: PRODUCT USED FOR UNKNOWN INDICATION
     Dosage: 25 MG, UNK
     Route: 058

REACTIONS (7)
  - BLOOD PRESSURE INCREASED [None]
  - HEART RATE IRREGULAR [None]
  - EAR DISORDER [None]
  - HERPES ZOSTER [None]
  - ANKLE FRACTURE [None]
  - RHEUMATOID ARTHRITIS [None]
  - ABNORMAL SENSATION IN EYE [None]
